FAERS Safety Report 8386604-2 (Version None)
Quarter: 2012Q2

REPORT INFORMATION
  Report Type: 
  Country: None (occurrence: None)
  Receive Date: 20120525
  Receipt Date: 20120217
  Transmission Date: 20120825
  Serious: No
  Sender: FDA-Public Use
  Company Number: US-GLAXOSMITHKLINE-A0966392A

PATIENT
  Age: 57 Year
  Sex: Male

DRUGS (5)
  1. VERAMYST [Suspect]
     Indication: RHINITIS ALLERGIC
     Dosage: 2SPR PER DAY
     Route: 045
  2. FINASTERIDE [Concomitant]
  3. FLOMAX [Concomitant]
  4. ANTIHISTAMINE [Concomitant]
  5. ADVAIR DISKUS 100/50 [Concomitant]

REACTIONS (1)
  - EPISTAXIS [None]
